FAERS Safety Report 4796892-7 (Version None)
Quarter: 2005Q4

REPORT INFORMATION
  Report Type: 
  Country: None (occurrence: None)
  Receive Date: 20051006
  Receipt Date: 20051006
  Transmission Date: 20060501
  Serious: No
  Sender: FDA-Public Use
  Company Number: None

PATIENT
  Age: 26 Year
  Sex: Male
  Weight: 81 kg

DRUGS (1)
  1. MORPHINE [Suspect]
     Indication: PAIN
     Dosage: 1/2/10
     Dates: start: 20050122, end: 20040124

REACTIONS (2)
  - MENTAL STATUS CHANGES POSTOPERATIVE [None]
  - OXYGEN SATURATION [None]
